FAERS Safety Report 23914285 (Version 2)
Quarter: 2024Q2

REPORT INFORMATION
  Report Type: Spontaneous
  Country: PK (occurrence: PK)
  Receive Date: 20240529
  Receipt Date: 20240603
  Transmission Date: 20240716
  Serious: Yes (Other)
  Sender: FDA-Public Use
  Company Number: PK-PFIZER INC-PV202400067719

PATIENT
  Age: 35 Year
  Sex: Female

DRUGS (3)
  1. FLUCONAZOLE [Suspect]
     Active Substance: FLUCONAZOLE
     Indication: Oral candidiasis
     Dosage: 150 MG, 1X/DAY
     Route: 048
  2. PREDNISOLONE [Concomitant]
     Active Substance: PREDNISOLONE
     Indication: Systemic lupus erythematosus
     Dosage: 5 MG, DAILY
     Route: 048
  3. HYDROQUINONE [Concomitant]
     Active Substance: HYDROQUINONE
     Indication: Systemic lupus erythematosus
     Dosage: 400 MG, DAILY

REACTIONS (1)
  - Fixed eruption [Recovered/Resolved with Sequelae]
